FAERS Safety Report 19475628 (Version 3)
Quarter: 2022Q1

REPORT INFORMATION
  Report Type: Other
  Country: US (occurrence: None)
  Receive Date: 20210630
  Receipt Date: 20220111
  Transmission Date: 20220424
  Serious: Yes (Other)
  Sender: FDA-Public Use
  Company Number: US-ROCHE-2857525

PATIENT
  Sex: Male
  Weight: 143.01 kg

DRUGS (21)
  1. XOLAIR [Suspect]
     Active Substance: OMALIZUMAB
     Indication: Pemphigoid
     Route: 058
  2. XOLAIR [Suspect]
     Active Substance: OMALIZUMAB
  3. XOLAIR [Suspect]
     Active Substance: OMALIZUMAB
  4. MECLIZINE [Concomitant]
     Active Substance: MECLIZINE HYDROCHLORIDE
  5. METOPROLOL SUCCINATE [Concomitant]
     Active Substance: METOPROLOL SUCCINATE
  6. MORPHINE [Concomitant]
     Active Substance: MORPHINE
  7. BACTROBAN [Concomitant]
     Active Substance: MUPIROCIN\MUPIROCIN CALCIUM
  8. ELIQUIS [Concomitant]
     Active Substance: APIXABAN
  9. SILDENAFIL [Concomitant]
     Active Substance: SILDENAFIL
  10. BUPROPION [Concomitant]
     Active Substance: BUPROPION
  11. GLIMEPIRIDE [Concomitant]
     Active Substance: GLIMEPIRIDE
  12. METFORMIN [Concomitant]
     Active Substance: METFORMIN HYDROCHLORIDE
  13. LOVENOX [Concomitant]
     Active Substance: ENOXAPARIN SODIUM
  14. NOVOLOG [Concomitant]
     Active Substance: INSULIN ASPART
  15. LANTUS [Concomitant]
     Active Substance: INSULIN GLARGINE
  16. PREDNISONE [Concomitant]
     Active Substance: PREDNISONE
     Route: 048
  17. PREDNISONE [Concomitant]
     Active Substance: PREDNISONE
     Route: 048
  18. DOXYCYCLINE [Concomitant]
     Active Substance: DOXYCYCLINE
     Route: 048
  19. LIDOCAINE [Concomitant]
     Active Substance: LIDOCAINE
  20. TRIAMCINOLONE [Concomitant]
     Active Substance: TRIAMCINOLONE
  21. NIACINAMIDE [Concomitant]
     Active Substance: NIACINAMIDE
     Dosage: 2 TABLET ORALLY TWICE A DAILY
     Route: 048

REACTIONS (2)
  - Dementia [Unknown]
  - Off label use [Unknown]
